FAERS Safety Report 9970224 (Version 1)
Quarter: 2014Q1

REPORT INFORMATION
  Report Type: Spontaneous
  Country: US (occurrence: US)
  Receive Date: 20140306
  Receipt Date: 20140306
  Transmission Date: 20141002
  Serious: No
  Sender: FDA-Public Use
  Company Number: US-BAYER-2014-034044

PATIENT
  Age: 54 Year
  Sex: Female
  Weight: 63 kg

DRUGS (7)
  1. ALEVE GELCAPS [Suspect]
     Indication: ARTHRITIS
     Dosage: 2 DF, BID
     Route: 048
     Dates: start: 201310, end: 20140227
  2. BAYER ASPIRIN REGIMEN ADULT LOW STRENGTH [Suspect]
     Indication: ISCHAEMIC HEART DISEASE PROPHYLAXIS
     Dosage: 1 DF, QD
     Route: 048
     Dates: start: 1994
  3. OMEGA [DOCOSAHEXANOIC ACID,EICOSAPENTAENOIC ACID] [Concomitant]
  4. CALCIUM [Concomitant]
  5. VITAMIN D [Concomitant]
  6. ZINC [Concomitant]
  7. IRON [Concomitant]

REACTIONS (3)
  - Extra dose administered [None]
  - Intentional drug misuse [None]
  - Incorrect drug administration duration [None]
